FAERS Safety Report 24303368 (Version 1)
Quarter: 2024Q3

REPORT INFORMATION
  Report Type: Spontaneous
  Country: US (occurrence: None)
  Receive Date: 20240909
  Receipt Date: 20240909
  Transmission Date: 20241016
  Serious: Yes (Other)
  Sender: Public
  Company Number: None

PATIENT
  Age: 23 Year
  Sex: Female
  Weight: 96.75 kg

DRUGS (6)
  1. MIDODRINE [Suspect]
     Active Substance: MIDODRINE
     Indication: Autonomic nervous system imbalance
     Dates: start: 20240820, end: 20240823
  2. FLUOXETINE [Concomitant]
     Active Substance: FLUOXETINE HYDROCHLORIDE
  3. VITAMIN C [Concomitant]
     Active Substance: ASCORBIC ACID
  4. MELATONIN [Concomitant]
     Active Substance: MELATONIN
  5. PREBIOTIC [Concomitant]
  6. ALLERGY MEDICATION [Concomitant]
     Active Substance: DIPHENHYDRAMINE HYDROCHLORIDE

REACTIONS (2)
  - Amnesia [None]
  - Autonomic nervous system imbalance [None]

NARRATIVE: CASE EVENT DATE: 20240822
